FAERS Safety Report 17105530 (Version 1)
Quarter: 2019Q4

REPORT INFORMATION
  Report Type: Spontaneous
  Country: ZA (occurrence: US)
  Receive Date: 20191203
  Receipt Date: 20191203
  Transmission Date: 20200122
  Serious: Yes (Life-Threatening, Hospitalization, Other)
  Sender: FDA-Public Use
  Company Number: ZA-009507513-1911USA010444

PATIENT
  Age: 39 Year
  Sex: Male

DRUGS (47)
  1. LINEZOLID. [Suspect]
     Active Substance: LINEZOLID
     Indication: TUBERCULOSIS
     Dosage: 600 MILLIGRAM, QD
     Route: 048
     Dates: start: 20181215, end: 20190221
  2. LINEZOLID. [Suspect]
     Active Substance: LINEZOLID
     Dosage: 600 MILLIGRAM, QD
     Route: 048
     Dates: start: 20190306, end: 2019
  3. DELAMANID [Suspect]
     Active Substance: DELAMANID
     Indication: TUBERCULOSIS
     Dosage: 100 MILLIGRAM, BID
     Route: 048
     Dates: start: 20190107, end: 20190221
  4. TERIZIDONE [Suspect]
     Active Substance: TERIZIDONE
     Indication: TUBERCULOSIS
     Dosage: 250/500 MG TWICE A DAY
     Route: 048
     Dates: start: 20181215, end: 20190221
  5. TERIZIDONE [Suspect]
     Active Substance: TERIZIDONE
     Dosage: 250/500 MG TWICE A DAY
     Dates: start: 20190306, end: 20190519
  6. PYRIDOXINE [Concomitant]
     Active Substance: PYRIDOXINE
  7. ISONIAZID. [Suspect]
     Active Substance: ISONIAZID
     Dosage: 600 MILLIGRAM, QD
     Route: 048
     Dates: start: 20190701
  8. BEDAQUILINE [Suspect]
     Active Substance: BEDAQUILINE
     Indication: TUBERCULOSIS
     Dosage: 200 MILLIGRAM, MONDAY, WEDNEDAY, FRIDAY.
     Route: 048
     Dates: start: 20181018, end: 20190221
  9. BEDAQUILINE [Suspect]
     Active Substance: BEDAQUILINE
     Dosage: 200 MILLIGRAM, MONDAY, WEDNEDAY, FRIDAY.
     Route: 048
     Dates: start: 20190306
  10. MAXOLON [Concomitant]
     Active Substance: METOCLOPRAMIDE HYDROCHLORIDE
     Dosage: UNK
  11. BACTRIM [Concomitant]
     Active Substance: SULFAMETHOXAZOLE\TRIMETHOPRIM
     Dosage: UNK
  12. ALUVIA [Concomitant]
     Active Substance: LOPINAVIR\RITONAVIR
     Dosage: UNK
  13. FOLIC ACID. [Concomitant]
     Active Substance: FOLIC ACID
  14. CLOFAZIMINE [Suspect]
     Active Substance: CLOFAZIMINE
     Dosage: 100 MILLIGRAM, QD
     Route: 048
     Dates: start: 20190306, end: 20190519
  15. INVANZ [Suspect]
     Active Substance: ERTAPENEM SODIUM
     Dosage: 1 GRAM, QD
     Route: 048
     Dates: start: 20190701
  16. PYRAZINAMIDE. [Suspect]
     Active Substance: PYRAZINAMIDE
     Dosage: 1.5 GRAM, QD
     Route: 048
     Dates: start: 20190306, end: 2019
  17. LEVOFLOXACIN. [Suspect]
     Active Substance: LEVOFLOXACIN
     Dosage: 1 GRAM, QD
     Route: 048
     Dates: start: 20190306, end: 20190519
  18. TRUVADA [Suspect]
     Active Substance: EMTRICITABINE\TENOFOVIR DISOPROXIL FUMARATE
     Indication: ANTIRETROVIRAL THERAPY
     Dosage: UNK
     Dates: end: 2019
  19. AMINOSALICYLIC ACID [Suspect]
     Active Substance: AMINOSALICYLIC ACID
     Dosage: 8 GRAM, QD
     Route: 048
     Dates: start: 20190306, end: 20190519
  20. NEVIRAPINE. [Concomitant]
     Active Substance: NEVIRAPINE
     Dosage: UNK
  21. CALCIUM GLUCONATE. [Concomitant]
     Active Substance: CALCIUM GLUCONATE
     Dosage: UNK
  22. INVANZ [Suspect]
     Active Substance: ERTAPENEM SODIUM
     Indication: TUBERCULOSIS
     Dosage: 1 GRAM, QD
     Route: 048
     Dates: start: 20181221, end: 20190221
  23. ISONIAZID. [Suspect]
     Active Substance: ISONIAZID
     Dosage: 600 MILLIGRAM, QD
     Route: 048
     Dates: start: 20190306
  24. TERIZIDONE [Suspect]
     Active Substance: TERIZIDONE
     Dosage: 250/500 MG TWICE A DAY
     Dates: start: 20190701
  25. DUMIVA [Concomitant]
     Active Substance: ABACAVIR SULFATE\LAMIVUDINE
     Dosage: UNK
  26. EMTRICITABINE (+) TENOFOVIR [Concomitant]
     Active Substance: EMTRICITABINE\TENOFOVIR
     Dosage: UNK
  27. INVANZ [Suspect]
     Active Substance: ERTAPENEM SODIUM
     Dosage: 1 GRAM, QD
     Route: 048
     Dates: start: 20190306
  28. LINEZOLID. [Suspect]
     Active Substance: LINEZOLID
     Dosage: 600 MILLIGRAM, QD
     Route: 048
     Dates: start: 20190701
  29. LEVOFLOXACIN. [Suspect]
     Active Substance: LEVOFLOXACIN
     Indication: TUBERCULOSIS
     Dosage: 1 GRAM, QD
     Route: 048
     Dates: start: 20181215, end: 20190221
  30. BEDAQUILINE [Suspect]
     Active Substance: BEDAQUILINE
     Dosage: 200 MILLIGRAM, MONDAY, WEDNEDAY, FRIDAY.
     Route: 048
     Dates: start: 20190701
  31. LYRICA [Concomitant]
     Active Substance: PREGABALIN
     Dosage: UNK
  32. DELAMANID [Suspect]
     Active Substance: DELAMANID
     Dosage: 100 MILLIGRAM, BID
     Route: 048
     Dates: start: 20190306, end: 20190519
  33. ISONIAZID. [Suspect]
     Active Substance: ISONIAZID
     Indication: TUBERCULOSIS
     Dosage: 600 MILLIGRAM, QD
     Route: 048
     Dates: start: 20181215, end: 20190221
  34. CLOFAZIMINE [Suspect]
     Active Substance: CLOFAZIMINE
     Indication: TUBERCULOSIS
     Dosage: 100 MILLIGRAM, QD
     Route: 048
     Dates: start: 20181215
  35. CLOFAZIMINE [Suspect]
     Active Substance: CLOFAZIMINE
     Dosage: 100 MILLIGRAM, QD
     Route: 048
     Dates: start: 20190701
  36. PYRAZINAMIDE. [Suspect]
     Active Substance: PYRAZINAMIDE
     Indication: TUBERCULOSIS
     Dosage: 1.5 GRAM, QD
     Route: 048
     Dates: start: 20181215, end: 20190221
  37. LEVOFLOXACIN. [Suspect]
     Active Substance: LEVOFLOXACIN
     Dosage: 1 GRAM, QD
     Route: 048
     Dates: start: 20190701
  38. AUGMENTIN [Suspect]
     Active Substance: AMOXICILLIN\CLAVULANATE POTASSIUM
     Dosage: 1 GRAM, Q12H
     Route: 048
     Dates: start: 20190701
  39. AMINOSALICYLIC ACID [Suspect]
     Active Substance: AMINOSALICYLIC ACID
     Dosage: 8 GRAM, QD
     Route: 048
     Dates: start: 20190701
  40. LASIX [Concomitant]
     Active Substance: FUROSEMIDE
     Dosage: UNK
  41. ELTROXIN [Concomitant]
     Active Substance: LEVOTHYROXINE
     Dosage: UNK
  42. PYRAZINAMIDE. [Suspect]
     Active Substance: PYRAZINAMIDE
     Dosage: 1.5 GRAM, QD
     Route: 048
     Dates: start: 20190701
  43. AUGMENTIN [Suspect]
     Active Substance: AMOXICILLIN\CLAVULANATE POTASSIUM
     Indication: TUBERCULOSIS
     Dosage: 1 GRAM, Q12H
     Route: 048
     Dates: start: 20181221, end: 20190221
  44. AUGMENTIN [Suspect]
     Active Substance: AMOXICILLIN\CLAVULANATE POTASSIUM
     Dosage: 1 GRAM, Q12H
     Route: 048
     Dates: start: 20190306
  45. AMINOSALICYLIC ACID [Suspect]
     Active Substance: AMINOSALICYLIC ACID
     Indication: TUBERCULOSIS
     Dosage: 8 GRAM, QD
     Route: 048
     Dates: start: 20181215, end: 20190221
  46. TEGRETOL [Concomitant]
     Active Substance: CARBAMAZEPINE
     Dosage: UNK
  47. AMITRIPTYLINE HYDROCHLORIDE. [Concomitant]
     Active Substance: AMITRIPTYLINE HYDROCHLORIDE
     Dosage: UNK

REACTIONS (2)
  - Renal impairment [Recovered/Resolved]
  - Meningitis [Unknown]

NARRATIVE: CASE EVENT DATE: 20190220
